FAERS Safety Report 22626026 (Version 1)
Quarter: 2023Q2

REPORT INFORMATION
  Report Type: Spontaneous
  Country: TR (occurrence: TR)
  Receive Date: 20230621
  Receipt Date: 20230621
  Transmission Date: 20230721
  Serious: Yes (Other)
  Sender: FDA-Public Use
  Company Number: TR-AMERICAN REGENT INC-2023001488

PATIENT
  Age: 24 Year
  Sex: Female

DRUGS (1)
  1. FERINJECT [Suspect]
     Active Substance: FERRIC CARBOXYMALTOSE
     Indication: Haemoglobin decreased
     Dosage: 1000 MILLIGRAM
     Route: 042
     Dates: start: 20230525, end: 20230525

REACTIONS (6)
  - Restlessness [Unknown]
  - Urinary retention [Unknown]
  - Dyspnoea [Unknown]
  - Back pain [Unknown]
  - Abdominal pain lower [Unknown]
  - Vomiting [Unknown]

NARRATIVE: CASE EVENT DATE: 20230525
